FAERS Safety Report 9413132 (Version 1)
Quarter: 2013Q3

REPORT INFORMATION
  Report Type: Spontaneous
  Country: US (occurrence: None)
  Receive Date: 20130708
  Receipt Date: 20130708
  Transmission Date: 20140515
  Serious: Yes (Other)
  Sender: FDA-Public Use
  Company Number: 09-AUR-09761

PATIENT
  Age: 43 Year
  Sex: Female

DRUGS (1)
  1. METFORMIN [Suspect]
     Indication: SUICIDE ATTEMPT

REACTIONS (7)
  - Hypoglycaemia [None]
  - Hypothermia [None]
  - Tachycardia [None]
  - Lactic acidosis [None]
  - Continuous haemodiafiltration [None]
  - Suicide attempt [None]
  - Overdose [None]
